FAERS Safety Report 18609723 (Version 1)
Quarter: 2020Q4

REPORT INFORMATION
  Report Type: Spontaneous
  Country: US (occurrence: US)
  Receive Date: 20201214
  Receipt Date: 20201214
  Transmission Date: 20210114
  Serious: No
  Sender: FDA-Public Use
  Company Number: US-GLENMARK PHARMACEUTICALS-2020GMK046202

PATIENT

DRUGS (2)
  1. ECOZA [Suspect]
     Active Substance: ECONAZOLE NITRATE
     Dosage: UNK
     Route: 061
     Dates: start: 202001
  2. ECOZA [Suspect]
     Active Substance: ECONAZOLE NITRATE
     Indication: FUNGAL SKIN INFECTION
     Dosage: UNK, BID
     Route: 061
     Dates: start: 201907

REACTIONS (3)
  - Fungal skin infection [Unknown]
  - Drug delivery system issue [Unknown]
  - Product dose omission in error [Unknown]

NARRATIVE: CASE EVENT DATE: 2019
